FAERS Safety Report 10946809 (Version 1)
Quarter: 2015Q1

REPORT INFORMATION
  Report Type: Spontaneous
  Country: US (occurrence: US)
  Receive Date: 20150323
  Receipt Date: 20150323
  Transmission Date: 20150721
  Serious: No
  Sender: FDA-Public Use
  Company Number: US-PFIZER INC-2015097231

PATIENT
  Age: 45 Year
  Sex: Female
  Weight: 86 kg

DRUGS (2)
  1. ADVIL COLD AND SINUS [Suspect]
     Active Substance: IBUPROFEN\PSEUDOEPHEDRINE HYDROCHLORIDE
     Indication: SINUS HEADACHE
     Dosage: UNK
     Dates: start: 20150312, end: 201503
  2. ADVIL COLD AND SINUS [Suspect]
     Active Substance: IBUPROFEN\PSEUDOEPHEDRINE HYDROCHLORIDE
     Indication: PARANASAL SINUS DISCOMFORT

REACTIONS (3)
  - Impaired work ability [Unknown]
  - Product quality issue [Unknown]
  - Drug ineffective [Not Recovered/Not Resolved]

NARRATIVE: CASE EVENT DATE: 201503
